FAERS Safety Report 6252859-3 (Version None)
Quarter: 2009Q3

REPORT INFORMATION
  Report Type: 
  Country: None (occurrence: None)
  Receive Date: 20090701
  Receipt Date: 20090624
  Transmission Date: 20100115
  Serious: Yes (Hospitalization)
  Sender: FDA-Public Use
  Company Number: FR-BAXTER-2009BH010673

PATIENT
  Age: 51 Year
  Sex: Male

DRUGS (8)
  1. ENDOXAN BAXTER [Suspect]
     Indication: BURKITT'S LYMPHOMA
     Route: 042
     Dates: start: 20080316, end: 20080318
  2. METHOTREXATE GENERIC [Suspect]
     Indication: BURKITT'S LYMPHOMA
     Route: 042
     Dates: start: 20080315, end: 20080315
  3. MABTHERA [Suspect]
     Indication: BURKITT'S LYMPHOMA
     Route: 042
     Dates: start: 20080314, end: 20080314
  4. MABTHERA [Suspect]
     Route: 042
     Dates: start: 20080320, end: 20080320
  5. ONCOVIN [Suspect]
     Indication: BURKITT'S LYMPHOMA
     Route: 042
     Dates: start: 20080315, end: 20080315
  6. ONCOVIN [Suspect]
     Route: 042
     Dates: start: 20080320, end: 20080320
  7. PREDNISOLONE [Suspect]
     Indication: BURKITT'S LYMPHOMA
     Route: 042
     Dates: start: 20080316, end: 20080319
  8. DOXORUBICIN HYDROCHLORIDE [Suspect]
     Indication: BURKITT'S LYMPHOMA
     Route: 042
     Dates: start: 20080316, end: 20080316

REACTIONS (1)
  - PALMAR-PLANTAR ERYTHRODYSAESTHESIA SYNDROME [None]
